FAERS Safety Report 14632057 (Version 2)
Quarter: 2018Q2

REPORT INFORMATION
  Report Type: Report from Study
  Country: US (occurrence: US)
  Receive Date: 20180313
  Receipt Date: 20180410
  Transmission Date: 20180711
  Serious: No
  Sender: FDA-Public Use
  Company Number: US-GILEAD-2018-0325803

PATIENT
  Age: 50 Year
  Sex: Female
  Weight: 66.21 kg

DRUGS (2)
  1. AMBRISENTAN [Suspect]
     Active Substance: AMBRISENTAN
     Indication: PULMONARY HYPERTENSION
     Dosage: 10 MG, QD
     Route: 065
     Dates: start: 20131029
  2. AMBRISENTAN [Suspect]
     Active Substance: AMBRISENTAN
     Indication: SYSTEMIC SCLERODERMA

REACTIONS (7)
  - Urinary tract infection [Recovered/Resolved]
  - Heart rate increased [Recovering/Resolving]
  - Flank pain [Recovering/Resolving]
  - Dyspnoea [Recovering/Resolving]
  - Cystitis noninfective [Recovering/Resolving]
  - Body temperature increased [Recovering/Resolving]
  - Tremor [Recovering/Resolving]

NARRATIVE: CASE EVENT DATE: 201802
